FAERS Safety Report 4888564-5 (Version None)
Quarter: 2005Q4

REPORT INFORMATION
  Report Type: 
  Country: None (occurrence: None)
  Receive Date: 20051215
  Receipt Date: 20050517
  Transmission Date: 20060501
  Serious: Yes (Hospitalization)
  Sender: FDA-Public Use
  Company Number: 2005065744

PATIENT
  Age: 56 Year
  Sex: Female
  Weight: 70.3075 kg

DRUGS (12)
  1. BEXTRA [Suspect]
     Indication: ARTHRITIS
     Dosage: 40 MG (20 MG, 2 IN 1 D), ORAL
     Route: 048
     Dates: start: 20040901
  2. BEXTRA [Suspect]
     Indication: FIBROMYALGIA
     Dosage: 40 MG (20 MG, 2 IN 1 D), ORAL
     Route: 048
     Dates: start: 20040901
  3. BEXTRA [Suspect]
     Indication: NEURALGIA
     Dosage: 40 MG (20 MG, 2 IN 1 D), ORAL
     Route: 048
     Dates: start: 20040901
  4. BEXTRA [Suspect]
     Indication: OSTEOPOROSIS
     Dosage: 40 MG (20 MG, 2 IN 1 D), ORAL
     Route: 048
     Dates: start: 20040901
  5. ULTRACET [Concomitant]
  6. ZOLPIDEM TARTRATE [Concomitant]
  7. CHLORZOXAZONE [Concomitant]
  8. ESOMEPRAZOLE (ESOMEPRAZOLE) [Concomitant]
  9. CLONAZEPAM [Concomitant]
  10. RISPERIDONE [Concomitant]
  11. SERTRALINE HCL [Concomitant]
  12. RALOXIFENE HCL [Concomitant]

REACTIONS (8)
  - ABDOMINAL PAIN [None]
  - DIZZINESS [None]
  - DYSPNOEA [None]
  - FALL [None]
  - HEAD BANGING [None]
  - LOSS OF CONSCIOUSNESS [None]
  - MYOCARDIAL INFARCTION [None]
  - NASOPHARYNGITIS [None]
